FAERS Safety Report 21783665 (Version 4)
Quarter: 2023Q1

REPORT INFORMATION
  Report Type: Spontaneous
  Country: PL (occurrence: PL)
  Receive Date: 20221227
  Receipt Date: 20230222
  Transmission Date: 20230417
  Serious: Yes (Other)
  Sender: FDA-Public Use
  Company Number: PL-SA-2022SA063786

PATIENT
  Age: 42 Year
  Sex: Male

DRUGS (3)
  1. ARIPIPRAZOLE [Suspect]
     Active Substance: ARIPIPRAZOLE
     Indication: Schizophrenia
     Dosage: UNK, DECIDED THAT THE ORAL FORM WAS BETTER
     Route: 048
     Dates: start: 2015
  2. ARIPIPRAZOLE [Suspect]
     Active Substance: ARIPIPRAZOLE
     Indication: Schizophrenia
     Dosage: 15 MG, INITIALLY, HE TOOK THE FORM OF LONG-ACTING INJECTION
     Route: 042
     Dates: start: 2015
  3. AMANTADINE [Suspect]
     Active Substance: AMANTADINE
     Indication: Sexual dysfunction
     Dosage: 100 MILLIGRAM (AT EVENING)
     Route: 065

REACTIONS (5)
  - Male sexual dysfunction [Recovered/Resolved]
  - Libido decreased [Recovering/Resolving]
  - Erectile dysfunction [Recovered/Resolved]
  - Sexual dysfunction [Recovered/Resolved]
  - Off label use [Unknown]

NARRATIVE: CASE EVENT DATE: 20170101
